FAERS Safety Report 10009421 (Version 2)
Quarter: 2014Q1

REPORT INFORMATION
  Report Type: Spontaneous
  Country: US (occurrence: US)
  Receive Date: 20140313
  Receipt Date: 20140313
  Transmission Date: 20141002
  Serious: No
  Sender: FDA-Public Use
  Company Number: US-INCYTE CORPORATION-2012IN000693

PATIENT
  Age: 77 Year
  Sex: Female
  Weight: 61.68 kg

DRUGS (9)
  1. JAKAFI [Suspect]
     Indication: MYELOFIBROSIS
     Dosage: 20 MG, BID
     Route: 048
     Dates: start: 201204, end: 20120426
  2. JAKAFI [Suspect]
     Dosage: 20 MG, QD
     Route: 048
     Dates: start: 20120427, end: 20120504
  3. LISINOPRIL [Concomitant]
     Dosage: 40 MG, QD
  4. ATENOLOL [Concomitant]
     Dosage: 10 MG, QD
  5. LEVOTHYROXINE [Concomitant]
     Dosage: 0.75 MG, QD
  6. OXYCODONE [Concomitant]
     Dosage: 5 MG, IN THE PM
  7. AMLODIPINE [Concomitant]
     Dosage: 5 MG, QD
  8. HYDROCODONE BITARTRATE AND ACETAMINOPHEN [Concomitant]
     Dosage: 10/500 MG, PRN
  9. AMBIEN [Concomitant]
     Dosage: 10 MG, QD, (AT BEDTIME)

REACTIONS (4)
  - Paraesthesia [Recovered/Resolved]
  - Asthenia [Recovered/Resolved]
  - Platelet count decreased [Recovered/Resolved]
  - Blood count abnormal [Recovered/Resolved]
